FAERS Safety Report 18236623 (Version 1)
Quarter: 2020Q3

REPORT INFORMATION
  Report Type: Spontaneous
  Country: US (occurrence: US)
  Receive Date: 20200907
  Receipt Date: 20200907
  Transmission Date: 20201103
  Serious: No
  Sender: FDA-Public Use
  Company Number: US-SUN PHARMACEUTICAL INDUSTRIES LTD-2020R1-248092

PATIENT
  Sex: Male

DRUGS (2)
  1. CEQUA [Suspect]
     Active Substance: CYCLOSPORINE
     Indication: VISION BLURRED
     Dosage: UNK (MORNING AND AFTERNOON ABOUT 12 HOURS APART)
     Route: 047
  2. MOISTURE EYE DROPS [Concomitant]
     Indication: PRODUCT USED FOR UNKNOWN INDICATION
     Dosage: UNK (MIDDLE OF THE DAY)
     Route: 065

REACTIONS (6)
  - Diplopia [Unknown]
  - Dry eye [Unknown]
  - Vision blurred [Unknown]
  - Off label use [Unknown]
  - Eye irritation [Unknown]
  - Drug ineffective [Unknown]
